FAERS Safety Report 9285293 (Version 1)
Quarter: 2013Q2

REPORT INFORMATION
  Report Type: Report from Study
  Country: FR (occurrence: FR)
  Receive Date: 20130513
  Receipt Date: 20130513
  Transmission Date: 20140414
  Serious: Yes (Death, Hospitalization, Other)
  Sender: FDA-Public Use
  Company Number: FR-BAYER-2013-046682

PATIENT
  Age: 68 Year
  Sex: Female
  Weight: 69 kg

DRUGS (16)
  1. XYZALL [Concomitant]
     Indication: HYPERSENSITIVITY
     Dosage: DAILY DOSE 5 MG
     Route: 048
  2. FORLAX [Concomitant]
     Indication: CONSTIPATION
     Dosage: DAILY DOSE 10 G
     Route: 048
     Dates: start: 20130308
  3. VITAMIN B1 AND B6 [Concomitant]
     Dosage: 250/ 250 MG X 3
     Route: 048
  4. MAG 2 [Concomitant]
     Dosage: 184 MG, TID
     Route: 048
  5. ZOLPIDEM [Concomitant]
     Indication: INSOMNIA
     Dosage: DAILY DOSE 10 MG
     Route: 048
     Dates: start: 20130402
  6. CEROVITE [Concomitant]
  7. NEXIUM [Concomitant]
     Dosage: 40 MG/DAY
     Route: 042
     Dates: start: 20130425, end: 20130502
  8. GLUCIDION [Concomitant]
     Dosage: 500 ML/DAY
     Route: 042
     Dates: start: 20130425, end: 20130502
  9. POLARAMIN [Concomitant]
     Dosage: UNK
     Dates: start: 20130425, end: 20130502
  10. REGORAFENIB [Suspect]
     Indication: COLORECTAL CANCER METASTATIC
     Dosage: 160 MG, QD
     Route: 048
     Dates: start: 20130323, end: 20130408
  11. FRAXODI [Concomitant]
     Indication: PULMONARY EMBOLISM
     Dosage: 11400 UI/ 0,6 ML
     Route: 058
     Dates: start: 20130108, end: 20130408
  12. FRAXODI [Concomitant]
     Indication: PULMONARY EMBOLISM
     Dosage: 0.5 ML/DAY
     Route: 058
     Dates: start: 20130422, end: 20130502
  13. INNOVAIR [Concomitant]
     Indication: BRONCHITIS CHRONIC
     Dosage: 100/6MCG X 2
     Route: 055
     Dates: end: 20130502
  14. TAHOR [Concomitant]
     Indication: HYPERCHOLESTEROLAEMIA
     Dosage: DAILY DOSE 10 MG
     Route: 048
     Dates: start: 2005
  15. DOLIPRANE [Concomitant]
     Indication: PAIN
     Dosage: DAILY DOSE 1 G
     Route: 048
     Dates: start: 20130402
  16. ESOMEPRAZOLE [Concomitant]
     Indication: GASTROOESOPHAGEAL REFLUX DISEASE
     Dosage: DAILY DOSE 40 MG
     Route: 048
     Dates: start: 20120130

REACTIONS (4)
  - Colorectal cancer metastatic [Fatal]
  - Autoimmune thrombocytopenia [Recovering/Resolving]
  - Epistaxis [None]
  - Asthenia [None]
